FAERS Safety Report 4468113-6 (Version None)
Quarter: 2004Q4

REPORT INFORMATION
  Report Type: 
  Country: None (occurrence: None)
  Receive Date: 20041001
  Receipt Date: 20040920
  Transmission Date: 20050328
  Serious: Yes (Other)
  Sender: FDA-Public Use
  Company Number: 2004234536KR

PATIENT
  Age: 74 Year
  Sex: Male
  Weight: 72 kg

DRUGS (1)
  1. XALATAN [Suspect]
     Indication: OPEN ANGLE GLAUCOMA
     Dosage: 1 GTT, QD, OPHTHALMIC
     Route: 047
     Dates: start: 20031215

REACTIONS (2)
  - HERPES SIMPLEX OPHTHALMIC [None]
  - HERPES ZOSTER OPHTHALMIC [None]
